FAERS Safety Report 7523164-X (Version None)
Quarter: 2011Q2

REPORT INFORMATION
  Report Type: 
  Country: None (occurrence: None)
  Receive Date: 20110603
  Receipt Date: 20110525
  Transmission Date: 20111010
  Serious: Yes (Death, Other)
  Sender: FDA-Public Use
  Company Number: GR-CUBIST-2011S1000380

PATIENT
  Age: 55 Year
  Sex: Male
  Weight: 80 kg

DRUGS (4)
  1. CUBICIN [Suspect]
     Dates: start: 20110409, end: 20110416
  2. IDARUBICIN HYDROCHLORIDE [Concomitant]
     Indication: CHEMOTHERAPY
     Dates: start: 20110409, end: 20110415
  3. CUBICIN [Suspect]
     Indication: PRODUCT USED FOR UNKNOWN INDICATION
     Dates: start: 20110409, end: 20110416
  4. CYTARABINE [Concomitant]
     Indication: CHEMOTHERAPY
     Dates: start: 20110409, end: 20110415

REACTIONS (3)
  - SEPTIC SHOCK [None]
  - NEUTROPENIA [None]
  - MULTI-ORGAN FAILURE [None]
